FAERS Safety Report 9003793 (Version 1)
Quarter: 2013Q1

REPORT INFORMATION
  Report Type: Spontaneous
  Country: US (occurrence: US)
  Receive Date: 20130108
  Receipt Date: 20130108
  Transmission Date: 20140127
  Serious: No
  Sender: FDA-Public Use
  Company Number: US-GLAXOSMITHKLINE-A0979664A

PATIENT
  Age: 73 Year
  Sex: Male

DRUGS (9)
  1. LOVAZA [Suspect]
     Indication: BLOOD CHOLESTEROL INCREASED
     Dosage: 2CAP PER DAY
     Route: 048
     Dates: start: 201204
  2. UNKNOWN MEDICATION [Concomitant]
  3. VITAMIN D [Concomitant]
  4. ACTOS [Concomitant]
  5. CRESTOR [Concomitant]
  6. AMLODIPINE [Concomitant]
  7. METFORMIN [Concomitant]
  8. FUROSEMIDE [Concomitant]
  9. PHENYTOIN [Concomitant]

REACTIONS (5)
  - Diarrhoea [Unknown]
  - Nausea [Unknown]
  - Dizziness [Unknown]
  - Abdominal pain upper [Unknown]
  - Faeces discoloured [Unknown]
